FAERS Safety Report 10264465 (Version 1)
Quarter: 2014Q2

REPORT INFORMATION
  Report Type: Spontaneous
  Country: US (occurrence: US)
  Receive Date: 20140627
  Receipt Date: 20140627
  Transmission Date: 20141212
  Serious: No
  Sender: FDA-Public Use
  Company Number: US-ASTRAZENECA-2014SE41268

PATIENT
  Sex: Female

DRUGS (2)
  1. NEXIUM [Suspect]
     Dosage: UNKNOWN DOSE, TWO TIMES A DAY
     Route: 048
  2. PREVACID [Concomitant]

REACTIONS (3)
  - Barrett^s oesophagus [Unknown]
  - Intentional product misuse [Unknown]
  - Intentional product misuse [Unknown]
